FAERS Safety Report 13089122 (Version 1)
Quarter: 2017Q1

REPORT INFORMATION
  Report Type: Spontaneous
  Country: US (occurrence: US)
  Receive Date: 20170104
  Receipt Date: 20170104
  Transmission Date: 20170428
  Serious: Yes (Other)
  Sender: FDA-Public Use
  Company Number: None

PATIENT
  Age: 68 Year
  Sex: Male
  Weight: 69.75 kg

DRUGS (2)
  1. ALLUPIRINOL [Concomitant]
  2. CLADRIBINE DRIP FOR 7 DAYS [Suspect]
     Active Substance: CLADRIBINE
     Indication: HAIRY CELL LEUKAEMIA
     Route: 041
     Dates: start: 20160513, end: 20160519

REACTIONS (10)
  - Oedema [None]
  - Cataract [None]
  - Weight decreased [None]
  - Oral pain [None]
  - Pollakiuria [None]
  - Alopecia [None]
  - Herpes zoster [None]
  - Fatigue [None]
  - Decreased appetite [None]
  - Trigeminal neuralgia [None]

NARRATIVE: CASE EVENT DATE: 20160513
